FAERS Safety Report 15447917 (Version 1)
Quarter: 2018Q3

REPORT INFORMATION
  Report Type: Report from Study
  Country: US (occurrence: US)
  Receive Date: 20180928
  Receipt Date: 20180928
  Transmission Date: 20181010
  Serious: Yes (Other)
  Sender: FDA-Public Use
  Company Number: US-PFIZER INC-2018391727

PATIENT
  Age: 32 Year

DRUGS (12)
  1. ARA?C [Suspect]
     Active Substance: CYTARABINE
     Indication: HODGKIN^S DISEASE RECURRENT
     Dosage: PART OF ADJUVANT CHEMOTHERAPY
     Route: 065
  2. PREDNISONE. [Suspect]
     Active Substance: PREDNISONE
     Indication: HODGKIN^S DISEASE RECURRENT
     Dosage: PART OF CHOP CHEMOTHERAPY
     Route: 065
  3. VINCRISTINE SULFATE. [Suspect]
     Active Substance: VINCRISTINE SULFATE
     Dosage: PART OF ADJUVANT CHEMOTHERAPY
     Route: 065
  4. CISPLATIN. [Suspect]
     Active Substance: CISPLATIN
     Indication: HODGKIN^S DISEASE RECURRENT
     Dosage: PART OF ADJUVANT CHEMOTHERAPY
     Route: 065
  5. CYCLOPHOSPHAMIDE. [Suspect]
     Active Substance: CYCLOPHOSPHAMIDE
     Indication: HODGKIN^S DISEASE RECURRENT
     Dosage: PART OF CHOP CHEMOTHERAPY
     Route: 065
  6. DOXORUBICIN HCL [Suspect]
     Active Substance: DOXORUBICIN HYDROCHLORIDE
     Indication: HODGKIN^S DISEASE RECURRENT
     Dosage: PART OF ABVD CHEMOTHERAPY
     Route: 065
  7. DACARBAZINE. [Suspect]
     Active Substance: DACARBAZINE
     Indication: HODGKIN^S DISEASE RECURRENT
     Dosage: PART OF ABVD CHEMOTHERAPY
     Route: 065
  8. DANAZOL. [Suspect]
     Active Substance: DANAZOL
     Indication: HODGKIN^S DISEASE RECURRENT
     Dosage: PART OF ADJUVANT CHEMOTHERAPY
     Route: 065
  9. DOXORUBICIN HCL [Suspect]
     Active Substance: DOXORUBICIN HYDROCHLORIDE
     Dosage: AS PART OF CHOP THERAPY
  10. VINCRISTINE SULFATE. [Suspect]
     Active Substance: VINCRISTINE SULFATE
     Indication: HODGKIN^S DISEASE RECURRENT
     Dosage: PART OF CHOP CHEMOTHERAPY
     Route: 065
  11. VINBLASTINE [Suspect]
     Active Substance: VINBLASTINE
     Indication: HODGKIN^S DISEASE RECURRENT
     Dosage: PART OF ABVD CHEMOTHERAPY
     Route: 065
  12. BLEOMYCIN SULFATE [Suspect]
     Active Substance: BLEOMYCIN SULFATE
     Indication: HODGKIN^S DISEASE RECURRENT
     Dosage: PART OF ABVD CHEMOTHERAPY
     Route: 065

REACTIONS (1)
  - Myelitis [Unknown]
